FAERS Safety Report 5116176-7 (Version None)
Quarter: 2006Q3

REPORT INFORMATION
  Report Type: 
  Country: None (occurrence: None)
  Receive Date: 20060927
  Receipt Date: 20060720
  Transmission Date: 20061208
  Serious: No
  Sender: FDA-Public Use
  Company Number: US-BRISTOL-MYERS SQUIBB COMPANY-13448907

PATIENT

DRUGS (7)
  1. DEFINITY [Suspect]
     Indication: ECHOCARDIOGRAM
     Dates: start: 20060720
  2. LASIX [Concomitant]
  3. SPIRONOLACTONE [Concomitant]
  4. ZOLOFT [Concomitant]
  5. LANTUS [Concomitant]
  6. HUMALOG [Concomitant]
  7. LACTULOSE [Concomitant]

REACTIONS (2)
  - BACK PAIN [None]
  - RENAL PAIN [None]
